FAERS Safety Report 22619783 (Version 8)
Quarter: 2024Q2

REPORT INFORMATION
  Report Type: Spontaneous
  Country: US (occurrence: US)
  Receive Date: 20230620
  Receipt Date: 20240429
  Transmission Date: 20240715
  Serious: No
  Sender: FDA-Public Use
  Company Number: US-SA-SAC20230616000699

PATIENT
  Age: 53 Year
  Sex: Male

DRUGS (6)
  1. ELOCTATE [Suspect]
     Active Substance: EFMOROCTOCOG ALFA
     Indication: Haemorrhage prophylaxis
     Dosage: 1750/3500 UNITS (+/-10%), Q4D FOR PROPHYLAXIS
     Route: 042
  2. ELOCTATE [Suspect]
     Active Substance: EFMOROCTOCOG ALFA
     Indication: Haemorrhage prophylaxis
     Dosage: 1750/3500 UNITS (+/-10%), Q4D FOR PROPHYLAXIS
     Route: 042
  3. ELOCTATE [Suspect]
     Active Substance: EFMOROCTOCOG ALFA
     Indication: Haemorrhage
     Dosage: 1750/3500 UNITS (+/-10%), EVERY 24 HOURS AS NEEDED FOR BREAKTHROUGH BLEEDS
     Route: 042
  4. ELOCTATE [Suspect]
     Active Substance: EFMOROCTOCOG ALFA
     Indication: Haemorrhage
     Dosage: 1750/3500 UNITS (+/-10%), EVERY 24 HOURS AS NEEDED FOR BREAKTHROUGH BLEEDS
     Route: 042
  5. ELOCTATE [Suspect]
     Active Substance: EFMOROCTOCOG ALFA
     Dosage: 3400 U (+/-10%) , EVERY 24 HOURS AS NEEDED FOR BREAKTHROUGH BLEEDING
     Route: 042
  6. ELOCTATE [Suspect]
     Active Substance: EFMOROCTOCOG ALFA
     Dosage: 3400 U (+/-10%) , EVERY 24 HOURS AS NEEDED FOR BREAKTHROUGH BLEEDING
     Route: 042

REACTIONS (5)
  - Haemorrhage [Recovered/Resolved]
  - Spontaneous haemorrhage [Unknown]
  - Haemorrhage [Not Recovered/Not Resolved]
  - Haemorrhage [Recovered/Resolved]
  - Haemorrhage [Not Recovered/Not Resolved]

NARRATIVE: CASE EVENT DATE: 20230606
